FAERS Safety Report 7915114-9 (Version None)
Quarter: 2011Q4

REPORT INFORMATION
  Report Type: 
  Country: None (occurrence: None)
  Receive Date: 20111115
  Receipt Date: 20111114
  Transmission Date: 20120403
  Serious: Yes (Hospitalization)
  Sender: FDA-Public Use
  Company Number: JP-GENZYME-THYM-1002166

PATIENT
  Sex: Female
  Weight: 39 kg

DRUGS (14)
  1. TEPRENONE [Concomitant]
     Indication: GASTRITIS
     Dosage: UNK
     Dates: start: 20090829, end: 20091030
  2. DEHYDROCHOLIC ACID [Concomitant]
     Indication: PROPHYLAXIS
     Dosage: UNK
     Dates: start: 20090811, end: 20090824
  3. FILGRASTIM [Concomitant]
     Indication: PROPHYLAXIS AGAINST TRANSPLANT REJECTION
     Dosage: UNK
     Dates: start: 20090816, end: 20090829
  4. PLATELETS, CONCENTRATED [Concomitant]
     Indication: APLASTIC ANAEMIA
     Dosage: UNK
     Dates: start: 20090806, end: 20090827
  5. URSODIOL [Concomitant]
     Indication: PROPHYLAXIS
     Dosage: UNK
     Dates: start: 20090801, end: 20090904
  6. THYMOGLOBULIN [Suspect]
     Indication: BONE MARROW CONDITIONING REGIMEN
     Dosage: 97.5 MG, QD
     Route: 042
     Dates: start: 20090805, end: 20090808
  7. CEFEPIME HYDROCHLORIDE [Concomitant]
     Indication: FEBRILE NEUTROPENIA
     Dosage: UNK
     Dates: start: 20090811, end: 20090824
  8. FAMOTIDINE [Concomitant]
     Indication: GASTRITIS
     Dosage: UNK
     Dates: start: 20090818, end: 20091030
  9. RED BLOOD CELLS, CONCENTRATED [Concomitant]
     Indication: APLASTIC ANAEMIA
     Dosage: UNK
     Dates: start: 20090807, end: 20090822
  10. FOSFLUCONAZOLE [Concomitant]
     Indication: ANTIFUNGAL PROPHYLAXIS
     Dosage: UNK
     Dates: start: 20090811, end: 20090825
  11. FENTANYL [Concomitant]
     Indication: STOMATITIS
     Dosage: UNK
     Dates: start: 20090823, end: 20090828
  12. TACROLIMUS [Concomitant]
     Indication: PROPHYLAXIS AGAINST GRAFT VERSUS HOST DISEASE
     Dosage: UNK
     Dates: start: 20090809, end: 20100704
  13. ACYCLOVIR [Concomitant]
     Indication: ANTIVIRAL PROPHYLAXIS
     Dosage: UNK
     Dates: start: 20090810, end: 20090831
  14. MORPHINE HCL ELIXIR [Concomitant]
     Indication: OROPHARYNGEAL PAIN
     Dosage: UNK
     Dates: start: 20090822, end: 20090824

REACTIONS (5)
  - STOMATITIS [None]
  - GASTRITIS [None]
  - FEBRILE NEUTROPENIA [None]
  - CYTOMEGALOVIRUS VIRAEMIA [None]
  - HERPES ZOSTER [None]
